FAERS Safety Report 9649328 (Version 1)
Quarter: 2013Q4

REPORT INFORMATION
  Report Type: Spontaneous
  Country: FR (occurrence: FR)
  Receive Date: 20131028
  Receipt Date: 20131028
  Transmission Date: 20140711
  Serious: Yes (Hospitalization, Other)
  Sender: FDA-Public Use
  Company Number: FR-PFIZER INC-2013305856

PATIENT
  Age: 77 Year
  Sex: Male

DRUGS (13)
  1. VANCOMYCIN HCL [Suspect]
     Indication: INTERVERTEBRAL DISCITIS
     Dosage: UNK
     Route: 042
     Dates: start: 20130725, end: 20130803
  2. MORPHINE [Suspect]
     Dosage: 120 MG, UNK
     Route: 048
     Dates: start: 20130801
  3. MORPHINE [Suspect]
     Dosage: 120 MG, UNK
     Route: 048
     Dates: start: 20130801
  4. MALARONE [Suspect]
     Indication: MALARIA
     Dosage: 4 TABLET
     Route: 048
     Dates: start: 20130801, end: 20130803
  5. MORPHINE [Concomitant]
     Dosage: UNK
     Dates: end: 20130801
  6. COAPROVEL [Concomitant]
     Dosage: UNK
  7. CARDENSIEL [Concomitant]
     Dosage: UNK
  8. DAFALGAN [Concomitant]
     Dosage: UNK
  9. LOVENOX [Concomitant]
     Dosage: UNK
  10. MERONEM [Concomitant]
     Dosage: UNK
     Dates: start: 20130725
  11. SOLU-MEDROL [Concomitant]
     Dosage: UNK
     Dates: start: 20130801
  12. MOVICOL [Concomitant]
     Dosage: UNK
     Dates: start: 20130801
  13. PRIMPERAN [Concomitant]
     Dosage: UNK

REACTIONS (3)
  - Altered state of consciousness [Recovered/Resolved]
  - Encephalopathy [Recovered/Resolved]
  - Hallucination [Recovered/Resolved]
